FAERS Safety Report 7215205-4 (Version None)
Quarter: 2011Q1

REPORT INFORMATION
  Report Type: 
  Country: None (occurrence: None)
  Receive Date: 20110107
  Receipt Date: 20101202
  Transmission Date: 20110831
  Serious: No
  Sender: FDA-Public Use
  Company Number: A0888798A

PATIENT
  Age: 55 Year
  Sex: Female

DRUGS (3)
  1. VALACYCLOVIR [Concomitant]
  2. ALTACE [Concomitant]
  3. LOVAZA [Suspect]
     Dosage: 2CAP TWICE PER DAY
     Route: 048
     Dates: start: 20050101

REACTIONS (5)
  - ERUCTATION [None]
  - PRODUCT ODOUR ABNORMAL [None]
  - DECREASED APPETITE [None]
  - PRODUCT QUALITY ISSUE [None]
  - WEIGHT DECREASED [None]
